FAERS Safety Report 21257178 (Version 2)
Quarter: 2022Q3

REPORT INFORMATION
  Report Type: Report from Study
  Country: JP (occurrence: JP)
  Receive Date: 20220826
  Receipt Date: 20220901
  Transmission Date: 20221027
  Serious: Yes (Hospitalization)
  Sender: FDA-Public Use
  Company Number: JP-KADMON-JP-KAD-22-00672

PATIENT
  Age: 47 Year
  Sex: Male

DRUGS (20)
  1. PREDNISOLONE [Suspect]
     Active Substance: PREDNISOLONE
     Indication: Chronic graft versus host disease
     Dosage: 15 MILLIGRAM, QD
     Route: 048
     Dates: start: 20211222
  2. PREDNISOLONE [Suspect]
     Active Substance: PREDNISOLONE
     Dosage: 12.5 MILLIGRAM, QD
     Route: 048
     Dates: start: 20220531, end: 20220725
  3. PREDNISOLONE [Suspect]
     Active Substance: PREDNISOLONE
     Dosage: 12 MILLIGRAM, QD
     Route: 048
     Dates: start: 20220726
  4. TACROLIMUS [Suspect]
     Active Substance: TACROLIMUS
     Indication: Chronic graft versus host disease
     Dosage: 0.4 MILLIGRAM, QD
     Route: 048
     Dates: start: 20200817
  5. FAMOTIDINE [Concomitant]
     Active Substance: FAMOTIDINE
     Indication: Prophylaxis against gastrointestinal ulcer
     Dosage: 20 MILLIGRAM, QD
     Route: 048
     Dates: start: 20201120
  6. URSODIOL [Concomitant]
     Active Substance: URSODIOL
     Indication: Chronic graft versus host disease
     Dosage: 400 MILLIGRAM, QD
     Route: 048
     Dates: start: 20180820
  7. SULFAMETHOXAZOLE\TRIMETHOPRIM [Concomitant]
     Active Substance: SULFAMETHOXAZOLE\TRIMETHOPRIM
     Indication: Infection prophylaxis
     Dosage: UNK
     Route: 048
     Dates: start: 20190202
  8. MAGNESIUM OXIDE [Concomitant]
     Active Substance: MAGNESIUM OXIDE
     Indication: Constipation
     Dosage: 660 MILLIGRAM, QD
     Route: 048
     Dates: start: 20210104
  9. SODIUM HYALURONATE [Concomitant]
     Active Substance: HYALURONATE SODIUM
     Indication: Chronic graft versus host disease
     Dosage: UNK, PRN
     Route: 047
     Dates: start: 20210119
  10. LATANOPROST [Concomitant]
     Active Substance: LATANOPROST
     Indication: Glaucoma
     Dosage: 1 DROP, QD
     Route: 047
     Dates: start: 20211213
  11. FLAVIN-ADENINE DINUCLEOTIDE DISODIUM [Concomitant]
     Indication: Chronic graft versus host disease
     Dosage: UNK, PRN
     Route: 050
     Dates: start: 20210906
  12. BENZOYL PEROXIDE [Concomitant]
     Active Substance: BENZOYL PEROXIDE
     Indication: Chronic graft versus host disease
     Dosage: UNK, PRN
     Route: 062
     Dates: start: 20210719
  13. INSULIN LISPRO [Concomitant]
     Active Substance: INSULIN LISPRO
     Indication: Steroid diabetes
     Dosage: UNK
     Route: 058
     Dates: start: 20210101
  14. FLUTICASONE PROPIONATE [Concomitant]
     Active Substance: FLUTICASONE PROPIONATE
     Indication: Chronic graft versus host disease
     Dosage: UNK, PRN
     Route: 055
     Dates: start: 20220208
  15. BORIC ACID [Concomitant]
     Active Substance: BORIC ACID
     Indication: Chronic graft versus host disease
     Dosage: UNK UNK, PRN
     Route: 047
     Dates: start: 20210719
  16. DORZOLAMIDE HYDROCHLORIDE [Concomitant]
     Active Substance: DORZOLAMIDE HYDROCHLORIDE
     Indication: Glaucoma
     Dosage: 3 DROP, QD
     Route: 047
     Dates: start: 20220503
  17. DEXAMETHASONE DIPROPIONATE [Concomitant]
     Active Substance: DEXAMETHASONE DIPROPIONATE
     Indication: Chronic graft versus host disease
     Dosage: UNK UNK, PRN
     Route: 062
     Dates: start: 20220405
  18. ORYCTOLAGUS CUNICULUS SKIN [Concomitant]
     Active Substance: ORYCTOLAGUS CUNICULUS SKIN
     Indication: Herpes zoster
     Dosage: 16 DOSAGE FORM, QD
     Route: 048
     Dates: start: 20220503
  19. LEVOFLOXACIN HEMIHYDRATE [Concomitant]
     Active Substance: LEVOFLOXACIN
     Indication: Infection prophylaxis
     Dosage: 4 DROP, QD
     Route: 047
     Dates: start: 20020716
  20. PITAVASTATIN CALCIUM [Concomitant]
     Active Substance: PITAVASTATIN CALCIUM
     Indication: Dyslipidaemia
     Dosage: 2 MILLIGRAM, QD
     Route: 048
     Dates: start: 20220707

REACTIONS (2)
  - Pneumonia [Recovered/Resolved]
  - Cataract [Recovered/Resolved]

NARRATIVE: CASE EVENT DATE: 20220718
